FAERS Safety Report 16732937 (Version 1)
Quarter: 2019Q3

REPORT INFORMATION
  Report Type: Spontaneous
  Country: CZ (occurrence: CZ)
  Receive Date: 20190823
  Receipt Date: 20190823
  Transmission Date: 20191005
  Serious: Yes (Other)
  Sender: FDA-Public Use
  Company Number: CZ-ROCHE-2380093

PATIENT
  Age: 70 Year
  Sex: Female
  Weight: 79 kg

DRUGS (9)
  1. KALIUM CHLORATUM [Concomitant]
     Active Substance: POTASSIUM CHLORIDE
  2. SERTRALIN [SERTRALINE] [Concomitant]
     Active Substance: SERTRALINE HYDROCHLORIDE
  3. COTELLIC [Suspect]
     Active Substance: COBIMETINIB
     Indication: METASTATIC MALIGNANT MELANOMA
     Route: 048
     Dates: start: 20190613, end: 20190630
  4. HELICID [OMEPRAZOLE] [Concomitant]
  5. ZELBORAF [Suspect]
     Active Substance: VEMURAFENIB
     Indication: METASTATIC MALIGNANT MELANOMA
     Route: 048
     Dates: start: 20190613, end: 20190630
  6. LEXAURIN [Concomitant]
     Active Substance: BROMAZEPAM
  7. PRESTANCE [Concomitant]
     Active Substance: AMLODIPINE BESYLATE\PERINDOPRIL ARGININE
  8. FORTECORTIN [DEXAMETHASONE] [Concomitant]
     Active Substance: DEXAMETHASONE
  9. ROSUCARD [Concomitant]
     Active Substance: ROSUVASTATIN CALCIUM

REACTIONS (1)
  - Erythema multiforme [Recovered/Resolved]

NARRATIVE: CASE EVENT DATE: 20190626
